FAERS Safety Report 24113948 (Version 4)
Quarter: 2024Q3

REPORT INFORMATION
  Report Type: Spontaneous
  Country: BR (occurrence: BR)
  Receive Date: 20240720
  Receipt Date: 20240807
  Transmission Date: 20241016
  Serious: Yes (Other)
  Sender: CELLTRION
  Company Number: BR-CELLTRION INC.-2023BR000894

PATIENT

DRUGS (5)
  1. INFLIXIMAB [Suspect]
     Active Substance: INFLIXIMAB
     Indication: Crohn^s disease
     Dosage: DOCTOR PRESCRIBED 1 BOX, OF 100MG, EVERY 4 WEEKS (SHE HAS NOT YET STARTED TREATMENT WITH REMSIMA/SHE
     Route: 042
     Dates: start: 20230113
  2. INFLIXIMAB [Suspect]
     Active Substance: INFLIXIMAB
     Dosage: 4 AMPOULES EVERY 3 MONTHS
     Route: 042
     Dates: start: 20190617, end: 20230113
  3. AZATHIOPRINE [Concomitant]
     Active Substance: AZATHIOPRINE
     Indication: Crohn^s disease
     Dosage: 3 CAPSULES A DAY
     Route: 048
     Dates: start: 2021
  4. CLOPIN [CLOPIDOGREL BISULFATE] [Concomitant]
     Indication: Anticoagulant therapy
     Dosage: 1 CAPSULE A DAY (START: 2023)
     Route: 048
     Dates: start: 2023
  5. AMOXICILLIN\CLARITHROMYCIN\LANSOPRAZOLE [Concomitant]
     Active Substance: AMOXICILLIN\CLARITHROMYCIN\LANSOPRAZOLE
     Indication: Bacterial infection
     Dosage: 1 CAPSULE A DAY
     Route: 048
     Dates: start: 202212

REACTIONS (6)
  - Cardiac failure [Unknown]
  - Cholecystitis [Unknown]
  - Gastrointestinal bacterial infection [Unknown]
  - Treatment delayed [Unknown]
  - Intentional product use issue [Unknown]
  - Therapy interrupted [Unknown]

NARRATIVE: CASE EVENT DATE: 20240401
